FAERS Safety Report 5234368-3 (Version None)
Quarter: 2007Q1

REPORT INFORMATION
  Report Type: 
  Country: None (occurrence: None)
  Receive Date: 20070209
  Receipt Date: 20070130
  Transmission Date: 20070707
  Serious: Yes (Death)
  Sender: FDA-Public Use
  Company Number: FR-ROCHE-456444

PATIENT
  Age: 62 Year
  Sex: Male

DRUGS (15)
  1. RIVOTRIL [Suspect]
     Indication: DRUG USE FOR UNKNOWN INDICATION
     Dosage: 30 DROPS IN THE MORNING.
     Route: 065
     Dates: start: 20060507, end: 20060507
  2. HYPNOVEL (INJ) [Interacting]
     Indication: DRUG USE FOR UNKNOWN INDICATION
     Dosage: AT MIDNIGHT.
     Route: 042
     Dates: start: 20060507
  3. RIVOTRIL [Interacting]
     Dosage: 2PM - 2 DOSES.
     Route: 030
     Dates: start: 20060507, end: 20060507
  4. RIVOTRIL [Interacting]
     Route: 030
     Dates: start: 20060508, end: 20060508
  5. TERCIAN [Interacting]
     Indication: DRUG USE FOR UNKNOWN INDICATION
     Dosage: STRENGTH = 100MG/5ML. AT 2:00.
     Route: 030
     Dates: start: 20060508
  6. LOXAPAC [Interacting]
     Indication: DRUG USE FOR UNKNOWN INDICATION
     Dosage: AT 22:00.
     Route: 030
     Dates: start: 20060507
  7. HALDOL [Interacting]
     Indication: DRUG USE FOR UNKNOWN INDICATION
     Route: 030
     Dates: start: 20060507
  8. RISPERDAL [Interacting]
     Indication: DRUG USE FOR UNKNOWN INDICATION
     Dosage: IN THE MORNING.
     Route: 048
     Dates: start: 20060507
  9. COZAAR [Concomitant]
  10. ZOCOR [Concomitant]
  11. ASPIRIN [Concomitant]
  12. OMEPRAZOLE [Concomitant]
  13. NOCTAMIDE [Concomitant]
     Dosage: DRUG REPORTED AS NOCTAMIDE 2.
  14. INSULINE [Concomitant]
  15. THERALENE [Concomitant]

REACTIONS (2)
  - DRUG INTERACTION [None]
  - SUDDEN DEATH [None]
